FAERS Safety Report 24179887 (Version 1)
Quarter: 2024Q3

REPORT INFORMATION
  Report Type: Spontaneous
  Country: US (occurrence: None)
  Receive Date: 20240805
  Receipt Date: 20240805
  Transmission Date: 20241016
  Serious: Yes (Hospitalization)
  Sender: Public
  Company Number: None

PATIENT
  Age: 51 Year
  Sex: Female

DRUGS (1)
  1. XDEMVY [Suspect]
     Active Substance: LOTILANER
     Indication: Demodex blepharitis
     Dosage: 1 DROP BID OPHTHALMIC
     Route: 047
     Dates: start: 20240728, end: 20240803

REACTIONS (3)
  - Instillation site swelling [None]
  - Instillation site inflammation [None]
  - Therapy cessation [None]

NARRATIVE: CASE EVENT DATE: 20240303
